FAERS Safety Report 7562147-0 (Version None)
Quarter: 2011Q2

REPORT INFORMATION
  Report Type: 
  Country: None (occurrence: None)
  Receive Date: 20110620
  Receipt Date: 20110620
  Transmission Date: 20111010
  Serious: Yes (Life-Threatening)
  Sender: FDA-Public Use
  Company Number: None

PATIENT
  Sex: Male
  Weight: 78.6 kg

DRUGS (1)
  1. PREDNISONE [Suspect]
     Indication: DERMATITIS CONTACT
     Dates: start: 20110607

REACTIONS (7)
  - DECREASED APPETITE [None]
  - NAUSEA [None]
  - DIZZINESS [None]
  - MUSCULAR WEAKNESS [None]
  - BLOOD PRESSURE DECREASED [None]
  - COLD SWEAT [None]
  - BLOOD POTASSIUM INCREASED [None]
